FAERS Safety Report 10385091 (Version 1)
Quarter: 2014Q1

REPORT INFORMATION
  Report Type: Spontaneous
  Country: US (occurrence: None)
  Receive Date: 20140306
  Receipt Date: 20140306
  Transmission Date: 20141002
  Serious: Yes (Hospitalization)
  Sender: FDA-Public Use
  Company Number: 163-21880-13042257

PATIENT
  Age: 48 Year
  Sex: Female
  Weight: 77.11 kg

DRUGS (15)
  1. REVLIMID (LENALIDOMIDE) (25 MILLIGRAM, CAPSULES) [Suspect]
     Indication: PLASMA CELL MYELOMA
     Dosage: 25 MG, 28 IN 28 D
     Route: 048
     Dates: start: 201208
  2. ASPIRIN (ACETYLSALICYLIC ACID) [Concomitant]
  3. HUMALOG (INSULIN LISPRO) [Concomitant]
  4. COREG (CARVEDILOL) [Concomitant]
  5. AMLODIPINE [Concomitant]
  6. MICARDIS (TELMISARTAN) [Concomitant]
  7. DEXAMETHASONE [Concomitant]
  8. CLONIDINE [Concomitant]
  9. HCTZ (HYDROCHLOROTHIAZIDE) [Concomitant]
  10. PANTOPRAZOLE [Concomitant]
  11. GABAPENTIN [Concomitant]
  12. POTASSIUM CHLORIDE [Concomitant]
  13. FUROSEMIDE [Concomitant]
  14. LANTUS (INSULIN GLARGINE) [Concomitant]
  15. WARFARIN [Concomitant]

REACTIONS (2)
  - Pneumonia [None]
  - Plasma cell myeloma [None]
